FAERS Safety Report 4838354-4 (Version None)
Quarter: 2005Q4

REPORT INFORMATION
  Report Type: 
  Country: None (occurrence: None)
  Receive Date: 20051123
  Receipt Date: 20051110
  Transmission Date: 20060501
  Serious: Yes (Hospitalization, Other)
  Sender: FDA-Public Use
  Company Number: 2005078628

PATIENT
  Age: 66 Year
  Sex: Male
  Weight: 72.5755 kg

DRUGS (10)
  1. GEODON [Suspect]
     Indication: AGITATION
     Dosage: 80 MG (40 MG, 2 IN 1 D), ORAL
     Route: 048
     Dates: start: 20030801, end: 20050101
  2. GEODON [Suspect]
     Indication: BIPOLAR DISORDER
     Dosage: 80 MG (40 MG, 2 IN 1 D), ORAL
     Route: 048
     Dates: start: 20030801, end: 20050101
  3. GEODON [Suspect]
     Indication: PSYCHOTIC DISORDER
     Dosage: 80 MG (40 MG, 2 IN 1 D), ORAL
     Route: 048
     Dates: start: 20030801, end: 20050101
  4. GEODON [Suspect]
     Indication: AGITATION
     Dosage: 20 MG (1 D), INTRAMUSCULAR
     Route: 030
     Dates: start: 20040410, end: 20050101
  5. GEODON [Suspect]
     Indication: PSYCHOTIC DISORDER
     Dosage: 20 MG (1 D), INTRAMUSCULAR
     Route: 030
     Dates: start: 20040410, end: 20050101
  6. LITHIUM CARBONATE [Suspect]
     Indication: AGITATION
     Dosage: 900 MG (3 IN 1 D), ORAL
     Route: 048
     Dates: start: 20040410
  7. LITHIUM CARBONATE [Suspect]
     Indication: PSYCHOTIC DISORDER
     Dosage: 900 MG (3 IN 1 D), ORAL
     Route: 048
     Dates: start: 20040410
  8. AMBIEN [Concomitant]
  9. ZYPREXA [Concomitant]
  10. ATIVAN [Concomitant]

REACTIONS (24)
  - ABNORMAL BEHAVIOUR [None]
  - AGGRESSION [None]
  - AGITATION [None]
  - BIPOLAR DISORDER [None]
  - COGNITIVE DISORDER [None]
  - CONFUSIONAL STATE [None]
  - CONSTIPATION [None]
  - DEHYDRATION [None]
  - DELUSION [None]
  - DIARRHOEA [None]
  - DISTURBANCE IN ATTENTION [None]
  - DRUG INEFFECTIVE [None]
  - DYSPEPSIA [None]
  - EATING DISORDER [None]
  - GAIT DISTURBANCE [None]
  - HALLUCINATION [None]
  - HALLUCINATION, AUDITORY [None]
  - INSOMNIA [None]
  - MANIA [None]
  - NEUROLEPTIC MALIGNANT SYNDROME [None]
  - PAIN [None]
  - PSYCHOTIC DISORDER [None]
  - REFUSAL OF TREATMENT BY PATIENT [None]
  - TREATMENT NONCOMPLIANCE [None]
